FAERS Safety Report 5167462-6 (Version None)
Quarter: 2006Q4

REPORT INFORMATION
  Report Type: 
  Country: None (occurrence: None)
  Receive Date: 20061130
  Receipt Date: 20061120
  Transmission Date: 20070319
  Serious: Yes (Life-Threatening, Hospitalization, Other)
  Sender: FDA-Public Use
  Company Number: 2005-05-1260

PATIENT
  Age: 30 Year
  Sex: Female
  Weight: 50 kg

DRUGS (14)
  1. POSACONAZOLE [Suspect]
     Indication: FUNGAL INFECTION
     Dosage: SEE IMAGE
     Route: 048
     Dates: end: 20050519
  2. POSACONAZOLE [Suspect]
     Indication: FUNGAL INFECTION
     Dosage: SEE IMAGE
     Route: 048
     Dates: start: 20050427
  3. POSACONAZOLE [Suspect]
     Indication: FUNGAL INFECTION
     Dosage: SEE IMAGE
     Route: 048
     Dates: start: 20050708
  4. MORPHINE [Suspect]
     Indication: PLEURITIC PAIN
     Dosage: SEE IMAGE
     Route: 058
     Dates: end: 20050520
  5. MORPHINE [Suspect]
     Indication: PLEURITIC PAIN
     Dosage: SEE IMAGE
     Route: 058
     Dates: start: 20050516
  6. AMBISOME [Suspect]
     Dosage: UNKNOWN
  7. NEORAL (CON.) [Concomitant]
  8. PARENTERAL NUTRITION (CON.) [Concomitant]
  9. MEDROL (CON.) [Concomitant]
  10. BACTRIM (CON.) [Concomitant]
  11. . [Concomitant]
  12. . [Concomitant]
  13. . [Concomitant]
  14. . [Concomitant]

REACTIONS (11)
  - BLOOD ALKALINE PHOSPHATASE INCREASED [None]
  - BRONCHITIS [None]
  - DISEASE PROGRESSION [None]
  - HYPERCAPNIA [None]
  - LUNG NEOPLASM [None]
  - NAUSEA [None]
  - PNEUMONIA [None]
  - RESPIRATORY FAILURE [None]
  - STENOTROPHOMONAS INFECTION [None]
  - TRANSAMINASES INCREASED [None]
  - VOMITING [None]
